FAERS Safety Report 8238718-5 (Version None)
Quarter: 2012Q1

REPORT INFORMATION
  Report Type: 
  Country: None (occurrence: None)
  Receive Date: 20120327
  Receipt Date: 20120322
  Transmission Date: 20120608
  Serious: Yes (Hospitalization, Other)
  Sender: FDA-Public Use
  Company Number: GB-B.I. PHARMACEUTICALS,INC./RIDGEFIELD-2012-UK-00421UK

PATIENT
  Age: 72 Year
  Sex: Female

DRUGS (4)
  1. ASPIRIN [Concomitant]
  2. ATENOLOL [Concomitant]
  3. CANDESARTAN CILEXETIL [Concomitant]
  4. PRAMIPEXOLE DIHYDROCHLORIDE [Suspect]
     Indication: PARKINSONISM
     Route: 048

REACTIONS (2)
  - DELUSION [None]
  - ACUTE PSYCHOSIS [None]
